FAERS Safety Report 6222148-1 (Version None)
Quarter: 2009Q2

REPORT INFORMATION
  Report Type: 
  Country: None (occurrence: None)
  Receive Date: 20090611
  Receipt Date: 20090603
  Transmission Date: 20091009
  Serious: Yes (Hospitalization)
  Sender: FDA-Public Use
  Company Number: US-ROCHE-597529

PATIENT
  Sex: Female

DRUGS (5)
  1. CAPECITABINE [Suspect]
     Indication: BREAST CANCER METASTATIC
     Dosage: DOSE 3600 MG 1 CYCLIC
     Route: 048
     Dates: start: 20081010, end: 20081019
  2. IXABEPILONE [Suspect]
     Indication: BREAST CANCER METASTATIC
     Dosage: DOSE: 60.8 MG 1 CYCLIC
     Route: 042
     Dates: start: 20081010, end: 20081010
  3. POTASSIUM CHLORIDE [Concomitant]
     Dates: start: 20081103
  4. LEVOXYL [Concomitant]
     Dosage: DRUG GENERIC NAME IS REPORTED AS LEVOTHYROXINE SODIUM
     Dates: start: 19780101
  5. ZOMETA [Concomitant]
     Dates: start: 20070110

REACTIONS (3)
  - ELECTROLYTE IMBALANCE [None]
  - HYPOALBUMINAEMIA [None]
  - OEDEMA PERIPHERAL [None]
